FAERS Safety Report 15043695 (Version 2)
Quarter: 2018Q3

REPORT INFORMATION
  Report Type: Spontaneous
  Country: DE (occurrence: DE)
  Receive Date: 20180621
  Receipt Date: 20180625
  Transmission Date: 20181010
  Serious: Yes (Other)
  Sender: FDA-Public Use
  Company Number: DE-ASCEND THERAPEUTICS-2049772

PATIENT
  Age: 45 Year
  Sex: Female

DRUGS (11)
  1. ESTROGEL [Suspect]
     Active Substance: ESTRADIOL
     Indication: HORMONE REPLACEMENT THERAPY
     Route: 062
     Dates: start: 201503
  2. MIRTAZAPIN (MIRTAZAPINE) [Concomitant]
     Active Substance: MIRTAZAPINE
     Route: 048
     Dates: start: 2013, end: 201805
  3. GYNOKADIN (ESTRADIOL HEMIHYDRATE) [Suspect]
     Active Substance: ESTRADIOL
     Route: 062
  4. EUTHYROX (LEVOTHYROXINE SODIUM) [Concomitant]
     Route: 048
  5. VITAMIN D (ERGOCALCIFEROL) [Concomitant]
     Active Substance: ERGOCALCIFEROL
     Route: 065
  6. VITAMIN B (VITAMIN B COMPLEX) [Concomitant]
     Route: 065
  7. PROGESTAN (PROGESTERONE) [Suspect]
     Active Substance: PROGESTERONE
     Route: 067
     Dates: start: 201505, end: 201512
  8. LINOLADIOL HN (PREDNISOLONE, ESTRADIOL) [Suspect]
     Active Substance: ESTRADIOL\PREDNISOLONE
     Route: 061
     Dates: start: 201801, end: 201805
  9. GYNOKADIN (ESTRADIOL HEMIHYDRATE) [Suspect]
     Active Substance: ESTRADIOL
     Route: 062
     Dates: start: 2018
  10. DUPHASTON [Concomitant]
     Active Substance: DYDROGESTERONE
     Route: 048
     Dates: start: 201601
  11. EUTHYROX (LEVOTHYROXINE SODIUM) [Concomitant]
     Route: 048

REACTIONS (9)
  - Breast enlargement [Not Recovered/Not Resolved]
  - Lichen sclerosus [Recovered/Resolved]
  - Product use issue [None]
  - Histamine intolerance [Not Recovered/Not Resolved]
  - Menorrhagia [Recovered/Resolved]
  - Fatigue [Recovered/Resolved]
  - Performance status decreased [Not Recovered/Not Resolved]
  - Oestradiol increased [Recovering/Resolving]
  - Potentiating drug interaction [Recovered/Resolved]

NARRATIVE: CASE EVENT DATE: 2015
